FAERS Safety Report 6964390-8 (Version None)
Quarter: 2010Q3

REPORT INFORMATION
  Report Type: 
  Country: None (occurrence: None)
  Receive Date: 20100903
  Receipt Date: 20100820
  Transmission Date: 20110219
  Serious: Yes (Hospitalization)
  Sender: FDA-Public Use
  Company Number: GB-RANBAXY-2010RR-37692

PATIENT
  Age: 36 Year
  Sex: Male
  Weight: 78 kg

DRUGS (10)
  1. CIPROFLOXACIN [Suspect]
     Indication: INTERVERTEBRAL DISCITIS
     Dosage: 500 MG, BID
     Route: 048
     Dates: start: 20100706, end: 20100810
  2. TEICOPLANIN [Suspect]
     Indication: INTERVERTEBRAL DISCITIS
     Dosage: 800 MG, QD
     Route: 042
     Dates: start: 20100713, end: 20100726
  3. TEICOPLANIN [Suspect]
     Dosage: UNK
     Route: 042
     Dates: start: 20100727, end: 20100810
  4. BACLOFEN [Concomitant]
  5. DICLOFENAC [Concomitant]
  6. DOCUSATE SODIUM [Concomitant]
  7. NULYTELY [Concomitant]
  8. ACETAMINOPHEN [Concomitant]
  9. SENNA [Concomitant]
  10. VANCOMYCIN [Concomitant]
     Indication: INTERVERTEBRAL DISCITIS
     Dosage: UNK
     Route: 042
     Dates: start: 20100706, end: 20100713

REACTIONS (3)
  - LYMPHOCYTE COUNT DECREASED [None]
  - NEUTROPHIL COUNT DECREASED [None]
  - WHITE BLOOD CELL COUNT DECREASED [None]
